FAERS Safety Report 5703648-7 (Version None)
Quarter: 2008Q2

REPORT INFORMATION
  Report Type: 
  Country: None (occurrence: None)
  Receive Date: 20080411
  Receipt Date: 20080402
  Transmission Date: 20081010
  Serious: Yes (Death, Hospitalization, Other)
  Sender: FDA-Public Use
  Company Number: JP-ABBOTT-08P-087-0445079-00

PATIENT
  Age: 67 Year
  Sex: Female
  Weight: 45.4 kg

DRUGS (3)
  1. CYCLOSPORINE [Suspect]
     Indication: INTERSTITIAL LUNG DISEASE
  2. CYCLOSPORINE [Suspect]
     Indication: DERMATOMYOSITIS
  3. CYCLOSPORINE [Suspect]

REACTIONS (1)
  - INTERSTITIAL LUNG DISEASE [None]
